FAERS Safety Report 6993661-4 (Version None)
Quarter: 2010Q3

REPORT INFORMATION
  Report Type: 
  Country: None (occurrence: None)
  Receive Date: 20100917
  Receipt Date: 20070612
  Transmission Date: 20110219
  Serious: Yes (Other)
  Sender: FDA-Public Use
  Company Number: US-ASTRAZENECA-2006UW22378

PATIENT
  Age: 536 Month
  Sex: Female
  Weight: 87.1 kg

DRUGS (9)
  1. SEROQUEL [Suspect]
     Dosage: 600-800MG
     Route: 048
     Dates: start: 20041001
  2. SEROQUEL [Suspect]
     Dosage: 25-300 MG, HS
     Route: 048
     Dates: start: 20051201
  3. ABILIFY [Concomitant]
  4. GEODON [Concomitant]
  5. TENORETIC 100 [Concomitant]
     Dosage: 50-25 MG, 25-100 MG, QD
     Route: 048
     Dates: start: 20050411
  6. PAXIL CR [Concomitant]
     Indication: ANXIETY
     Dosage: 20-37.5 MG, QD
     Route: 048
     Dates: start: 20040403
  7. PAXIL CR [Concomitant]
     Indication: PANIC ATTACK
     Dosage: 20-37.5 MG, QD
     Route: 048
     Dates: start: 20040403
  8. ATENOLOL [Concomitant]
     Route: 048
     Dates: start: 20050411
  9. INDERAL [Concomitant]
     Route: 048
     Dates: start: 20050411

REACTIONS (3)
  - DIABETES MELLITUS [None]
  - DIABETES MELLITUS INADEQUATE CONTROL [None]
  - TYPE 2 DIABETES MELLITUS [None]
